FAERS Safety Report 19151447 (Version 1)
Quarter: 2021Q2

REPORT INFORMATION
  Report Type: Report from Study
  Country: US (occurrence: US)
  Receive Date: 20210419
  Receipt Date: 20210419
  Transmission Date: 20210717
  Serious: Yes (Other)
  Sender: FDA-Public Use
  Company Number: US-GILEAD-2021-0524870

PATIENT
  Age: 39 Year
  Sex: Male

DRUGS (17)
  1. BUDESONIDE;FORMOTEROL [Concomitant]
     Active Substance: BUDESONIDE\FORMOTEROL
  2. TRELEGY ELLIPTA [Concomitant]
     Active Substance: FLUTICASONE FUROATE\UMECLIDINIUM BROMIDE\VILANTEROL TRIFENATATE
  3. MULTIVITAMINS [VITAMINS NOS] [Concomitant]
     Active Substance: VITAMINS
  4. INCRUSE ELLIPTA [Concomitant]
     Active Substance: UMECLIDINIUM BROMIDE
  5. PULMOZYME [Concomitant]
     Active Substance: DORNASE ALFA
  6. SODIUM CHLORIDE. [Concomitant]
     Active Substance: SODIUM CHLORIDE
  7. AUGMENTED BETAMETHASONE DIPROPIONATE [Concomitant]
  8. MEPHYTON [Concomitant]
     Active Substance: PHYTONADIONE
  9. VITAMIN C [Concomitant]
     Active Substance: ASCORBIC ACID
  10. ADVAIR HFA [Concomitant]
     Active Substance: FLUTICASONE PROPIONATE\SALMETEROL XINAFOATE
  11. ALBUTEROL [SALBUTAMOL] [Concomitant]
     Active Substance: ALBUTEROL
  12. AZITHROMYCIN ANHYDROUS. [Concomitant]
     Active Substance: AZITHROMYCIN ANHYDROUS
  13. CALCIUM CARBONATE. [Concomitant]
     Active Substance: CALCIUM CARBONATE
  14. AZTREONAM LYSINE [Suspect]
     Active Substance: AZTREONAM LYSINE
     Indication: CYSTIC FIBROSIS LUNG
     Dosage: 75 MG, TID, CONTINUOUSLY
     Route: 055
     Dates: start: 20150811
  15. AZELASTINE [AZELASTINE HYDROCHLORIDE] [Concomitant]
  16. VITAMIN D3 [Concomitant]
     Active Substance: CHOLECALCIFEROL
  17. ZENPEP [Concomitant]
     Active Substance: PANCRELIPASE AMYLASE\PANCRELIPASE LIPASE\PANCRELIPASE PROTEASE

REACTIONS (2)
  - Off label use [Not Recovered/Not Resolved]
  - Central venous catheterisation [Not Recovered/Not Resolved]

NARRATIVE: CASE EVENT DATE: 202103
